FAERS Safety Report 18242468 (Version 2)
Quarter: 2021Q4

REPORT INFORMATION
  Report Type: Report from Study
  Country: CA (occurrence: CA)
  Receive Date: 20200908
  Receipt Date: 20211208
  Transmission Date: 20220303
  Serious: Yes (Hospitalization, Other)
  Sender: FDA-Public Use
  Company Number: CA-PFIZER INC-2020340579

PATIENT
  Age: 77 Year
  Sex: Male

DRUGS (5)
  1. AZITHROMYCIN [Suspect]
     Active Substance: AZITHROMYCIN
     Dosage: UNK
     Route: 065
  2. ALVESCO [Suspect]
     Active Substance: CICLESONIDE
     Dosage: UNK, AS NEEDED
     Route: 065
  3. BREO ELLIPTA [Suspect]
     Active Substance: FLUTICASONE FUROATE\VILANTEROL TRIFENATATE
     Dosage: UNK, AS NEEDED
  4. ALBUTEROL SULFATE [Suspect]
     Active Substance: ALBUTEROL SULFATE
     Indication: Asthma
     Dosage: 100 MG, MONTHLY
     Route: 065
  5. UMECLIDINIUM BROMIDE [Suspect]
     Active Substance: UMECLIDINIUM BROMIDE
     Dosage: UNK, AS NEEDED
     Route: 065

REACTIONS (9)
  - Therapeutic product effect incomplete [Unknown]
  - Asthma [Unknown]
  - Full blood count abnormal [Unknown]
  - Diabetes mellitus [Unknown]
  - Dyspnoea [Recovering/Resolving]
  - Loss of personal independence in daily activities [Recovering/Resolving]
  - Renal failure [Unknown]
  - Sleep disorder due to a general medical condition [Recovering/Resolving]
  - Wheezing [Recovering/Resolving]
